FAERS Safety Report 10645900 (Version 1)
Quarter: 2014Q4

REPORT INFORMATION
  Report Type: Spontaneous
  Country: ES (occurrence: None)
  Receive Date: 20141209
  Receipt Date: 20141209
  Transmission Date: 20150529
  Serious: Yes (Hospitalization)
  Sender: FDA-Public Use
  Company Number: 2656562

PATIENT
  Age: 41 Year
  Sex: Female

DRUGS (4)
  1. ESLICARBAZEPINE [Suspect]
     Active Substance: ESLICARBAZEPINE
     Indication: SEIZURE
     Dosage: 1 DAY
  2. (MEROPENEM) [Suspect]
     Active Substance: MEROPENEM
     Indication: MENINGITIS
  3. (LACOSAMIDE) [Concomitant]
  4. (LEVETIRACETAM) [Concomitant]

REACTIONS (3)
  - Erythema multiforme [None]
  - Rash maculo-papular [None]
  - Sensitisation [None]
